FAERS Safety Report 13424049 (Version 1)
Quarter: 2017Q2

REPORT INFORMATION
  Report Type: Report from Study
  Country: PK (occurrence: PK)
  Receive Date: 20170410
  Receipt Date: 20170410
  Transmission Date: 20170830
  Serious: Yes (Hospitalization, Other)
  Sender: FDA-Public Use
  Company Number: PHHY2017PK051706

PATIENT
  Age: 52 Year
  Sex: Male

DRUGS (1)
  1. CO-DIOVAN [Suspect]
     Active Substance: HYDROCHLOROTHIAZIDE\VALSARTAN
     Indication: HYPERTENSION
     Dosage: 1 DF (25MG HYDROCHLOROTHIAZIDE/160MG VALSARTAN), QD
     Route: 048
     Dates: start: 20130228

REACTIONS (3)
  - Cellulitis [Recovering/Resolving]
  - Blood pressure inadequately controlled [Not Recovered/Not Resolved]
  - Reactive perforating collagenosis [Not Recovered/Not Resolved]

NARRATIVE: CASE EVENT DATE: 20160101
